FAERS Safety Report 12739642 (Version 1)
Quarter: 2016Q3

REPORT INFORMATION
  Report Type: Spontaneous
  Country: CN (occurrence: CN)
  Receive Date: 20160913
  Receipt Date: 20160913
  Transmission Date: 20161109
  Serious: Yes (Other)
  Sender: FDA-Public Use
  Company Number: CN-GUERBET LLC-1057287

PATIENT
  Age: 49 Year

DRUGS (3)
  1. GELFOAM [Concomitant]
     Active Substance: GELATIN\THROMBIN HUMAN
     Route: 013
  2. NBCA (N-BUTYL CYANOACRYLATE) [Suspect]
     Active Substance: ENBUCRILATE
     Route: 013
  3. LIPIODOL [Suspect]
     Active Substance: ETHIODIZED OIL
     Indication: THERAPEUTIC EMBOLISATION
     Route: 013

REACTIONS (3)
  - Back pain [Unknown]
  - Off label use [Unknown]
  - Renal abscess [Unknown]
